FAERS Safety Report 16728489 (Version 1)
Quarter: 2019Q3

REPORT INFORMATION
  Report Type: Spontaneous
  Country: US (occurrence: US)
  Receive Date: 20190704
  Receipt Date: 20190704
  Transmission Date: 20191005
  Serious: Yes (Hospitalization)
  Sender: FDA-Public Use
  Company Number: None

PATIENT
  Age: 69 Year
  Sex: Male
  Weight: 75 kg

DRUGS (1)
  1. WARFARIN [Suspect]
     Active Substance: WARFARIN
     Indication: ATRIAL FIBRILLATION
     Route: 048
     Dates: start: 20071004, end: 20190606

REACTIONS (5)
  - International normalised ratio decreased [None]
  - Eye haemorrhage [None]
  - Sinusitis [None]
  - Ear haemorrhage [None]
  - Epistaxis [None]

NARRATIVE: CASE EVENT DATE: 20190329
